FAERS Safety Report 7216118-4 (Version None)
Quarter: 2011Q1

REPORT INFORMATION
  Report Type: 
  Country: None (occurrence: None)
  Receive Date: 20110107
  Receipt Date: 20110104
  Transmission Date: 20110831
  Serious: Yes (Death)
  Sender: FDA-Public Use
  Company Number: US-CELGENEUS-163-21880-11010347

PATIENT
  Sex: Female

DRUGS (10)
  1. CALTRATE [Concomitant]
     Route: 065
  2. VITAMIN D [Concomitant]
     Route: 065
  3. ZOLPIDEM [Concomitant]
     Route: 065
  4. REVLIMID [Suspect]
     Indication: LYMPHOMA
     Route: 048
     Dates: start: 20100708
  5. ENBREL [Concomitant]
     Indication: RHEUMATOID ARTHRITIS
     Route: 058
     Dates: start: 20040101
  6. ARANESP [Concomitant]
     Route: 065
  7. ARTHROTEC [Concomitant]
     Route: 065
  8. HYDROCODONE WITH APAP [Concomitant]
     Route: 065
  9. ASPIRIN [Concomitant]
     Route: 065
  10. VELCADE [Concomitant]
     Route: 065

REACTIONS (1)
  - DEATH [None]
